FAERS Safety Report 9716204 (Version 2)
Quarter: 2013Q4

REPORT INFORMATION
  Report Type: Spontaneous
  Country: US (occurrence: US)
  Receive Date: 20131127
  Receipt Date: 20131231
  Transmission Date: 20140711
  Serious: Yes (Death)
  Sender: FDA-Public Use
  Company Number: US-ASTELLAS-2013US012409

PATIENT
  Sex: Male

DRUGS (1)
  1. PROGRAF [Suspect]
     Indication: TRANSPLANT
     Dosage: 2 MG, BID
     Route: 065
     Dates: start: 199908

REACTIONS (1)
  - Myocardial infarction [Fatal]
